FAERS Safety Report 11115491 (Version 1)
Quarter: 2015Q2

REPORT INFORMATION
  Report Type: Spontaneous
  Country: US (occurrence: US)
  Receive Date: 20150515
  Receipt Date: 20150515
  Transmission Date: 20150821
  Serious: No
  Sender: FDA-Public Use
  Company Number: US-009507513-1504USA021706

PATIENT
  Age: 17 Year
  Sex: Female
  Weight: 78.5 kg

DRUGS (2)
  1. NEXPLANON [Suspect]
     Active Substance: ETONOGESTREL
     Indication: CONTRACEPTION
     Dosage: 1 ROD, 3 YEARS
     Route: 059
     Dates: start: 20140711, end: 20150204
  2. NEXPLANON [Suspect]
     Active Substance: ETONOGESTREL
     Indication: ACNE

REACTIONS (3)
  - Weight increased [Unknown]
  - Device breakage [Recovered/Resolved]
  - Drug administration error [Unknown]

NARRATIVE: CASE EVENT DATE: 201408
